FAERS Safety Report 8590068-3 (Version None)
Quarter: 2012Q3

REPORT INFORMATION
  Report Type: 
  Country: None (occurrence: None)
  Receive Date: 20120813
  Receipt Date: 20120807
  Transmission Date: 20120928
  Serious: Yes (Hospitalization, Disabling, Other)
  Sender: FDA-Public Use
  Company Number: US-009507513-1203USA03342

PATIENT

DRUGS (22)
  1. FOSAMAX [Suspect]
     Indication: OSTEOPOROSIS
     Dosage: 5 MG, QD
     Route: 048
     Dates: start: 19990415
  2. FOSAMAX [Suspect]
     Dosage: 70 MG, UNK
     Route: 048
     Dates: end: 20000301
  3. ACTONEL [Concomitant]
     Dosage: 5 MG, UNK
     Route: 048
     Dates: start: 20001117
  4. AVAPRO [Concomitant]
     Dosage: 150 MG, QD
     Route: 048
  5. SYNTHROID [Concomitant]
     Dosage: 75 ?G, QD
     Route: 048
     Dates: start: 19920101
  6. FOSAMAX [Suspect]
     Dosage: 70 MG, UNK
     Route: 048
     Dates: start: 20000301, end: 20090901
  7. ACTONEL [Concomitant]
     Dosage: 35 MG, QW
     Route: 048
  8. ACTOS [Concomitant]
     Dosage: 30-45
     Route: 048
     Dates: start: 19910101, end: 20110101
  9. FOSAMAX [Suspect]
     Dosage: 70 MG, QW
     Route: 048
     Dates: start: 20091201
  10. PLAVIX [Concomitant]
     Indication: CEREBROVASCULAR ACCIDENT PROPHYLAXIS
     Dosage: 75 MG, QD
     Route: 048
  11. GLUCOPHAGE [Concomitant]
     Dosage: 500-1000
     Route: 048
     Dates: start: 19910101
  12. LOTRISONE [Concomitant]
     Dates: start: 19961221
  13. COZAAR [Concomitant]
     Indication: HYPERTENSION
     Dosage: 50 MG, QD
     Route: 048
  14. FOSAMAX [Suspect]
     Dosage: 70 MG, QW
     Route: 048
     Dates: start: 20090911, end: 20110701
  15. ACTONEL [Concomitant]
     Dosage: 70 MG, UNK
     Route: 048
     Dates: start: 20030301, end: 20090901
  16. VITAMIN D [Concomitant]
  17. LIPITOR [Concomitant]
     Indication: BLOOD CHOLESTEROL INCREASED
     Dosage: 40 MG, QD
     Route: 048
     Dates: end: 20110101
  18. SIMVASTATIN [Concomitant]
     Indication: BLOOD CHOLESTEROL INCREASED
  19. AMARYL [Concomitant]
  20. TICLID [Concomitant]
  21. LANTUS [Concomitant]
     Dosage: 20 IU, HS
     Dates: start: 20080101
  22. CALCIUM (UNSPECIFIED) [Concomitant]

REACTIONS (61)
  - DYSPNOEA [None]
  - CHEST PAIN [None]
  - TOOTH DISORDER [None]
  - ANKLE FRACTURE [None]
  - FIBULA FRACTURE [None]
  - INSOMNIA [None]
  - MUSCULAR WEAKNESS [None]
  - ROTATOR CUFF SYNDROME [None]
  - COLLAGEN-VASCULAR DISEASE [None]
  - MUSCLE STRAIN [None]
  - MUSCULOSKELETAL PAIN [None]
  - ARTHRALGIA [None]
  - MERALGIA PARAESTHETICA [None]
  - OBESITY [None]
  - DEPRESSION [None]
  - FEMUR FRACTURE [None]
  - FOOT FRACTURE [None]
  - HAEMATURIA [None]
  - VASCULAR CALCIFICATION [None]
  - HAND FRACTURE [None]
  - ANXIETY [None]
  - SPONDYLOLISTHESIS [None]
  - PULMONARY CONGESTION [None]
  - PAIN IN EXTREMITY [None]
  - OSTEOPENIA [None]
  - CARPAL TUNNEL SYNDROME [None]
  - INGROWING NAIL [None]
  - PERIPHERAL SENSORIMOTOR NEUROPATHY [None]
  - BONE LESION [None]
  - HYPERLIPIDAEMIA [None]
  - NAUSEA [None]
  - FRACTURE DELAYED UNION [None]
  - DEVICE FAILURE [None]
  - EXCORIATION [None]
  - CORONARY ARTERY DISEASE [None]
  - MUSCULOSKELETAL CHEST PAIN [None]
  - OEDEMA PERIPHERAL [None]
  - RETINOPATHY [None]
  - CHOLELITHIASIS [None]
  - LUNG INFILTRATION [None]
  - TRANSIENT ISCHAEMIC ATTACK [None]
  - LIGAMENT SPRAIN [None]
  - INTERVERTEBRAL DISC DEGENERATION [None]
  - COUGH [None]
  - URINARY TRACT INFECTION [None]
  - EXOSTOSIS [None]
  - HYPOAESTHESIA [None]
  - RIB FRACTURE [None]
  - TENDONITIS [None]
  - HEADACHE [None]
  - ANAEMIA [None]
  - CONTUSION [None]
  - HEART RATE IRREGULAR [None]
  - RESPIRATORY DISTRESS [None]
  - SLEEP APNOEA SYNDROME [None]
  - COMMINUTED FRACTURE [None]
  - EMOTIONAL DISTRESS [None]
  - OSTEOARTHRITIS [None]
  - FALL [None]
  - NEPHROLITHIASIS [None]
  - OROPHARYNGEAL PAIN [None]
